FAERS Safety Report 6317614-4 (Version None)
Quarter: 2009Q3

REPORT INFORMATION
  Report Type: 
  Country: None (occurrence: None)
  Receive Date: 20090821
  Receipt Date: 20090810
  Transmission Date: 20100115
  Serious: Yes (Other)
  Sender: FDA-Public Use
  Company Number: US-ASTRAZENECA-2007UW05952

PATIENT
  Age: 14625 Day
  Sex: Female
  Weight: 132.4 kg

DRUGS (30)
  1. SEROQUEL [Suspect]
     Indication: BIPOLAR DISORDER
     Dosage: 25 MG TO 100 MG
     Route: 048
     Dates: start: 20020101, end: 20030101
  2. SEROQUEL [Suspect]
     Indication: SLEEP DISORDER
     Dosage: 25 MG TO 100 MG
     Route: 048
     Dates: start: 20020101, end: 20030101
  3. SEROQUEL [Suspect]
     Indication: POST-TRAUMATIC STRESS DISORDER
     Dosage: 25 MG TO 100 MG
     Route: 048
     Dates: start: 20020101, end: 20030101
  4. SEROQUEL [Suspect]
     Indication: HALLUCINATION
     Dosage: 25 MG TO 100 MG
     Route: 048
     Dates: start: 20020101, end: 20030101
  5. SEROQUEL [Suspect]
     Indication: ANTIDEPRESSANT THERAPY
     Dosage: 25 MG TO 100 MG
     Route: 048
     Dates: start: 20020101, end: 20030101
  6. SEROQUEL [Suspect]
     Dosage: 50-150 MG
     Route: 048
     Dates: start: 20020819
  7. SEROQUEL [Suspect]
     Dosage: 50-150 MG
     Route: 048
     Dates: start: 20020819
  8. SEROQUEL [Suspect]
     Dosage: 50-150 MG
     Route: 048
     Dates: start: 20020819
  9. SEROQUEL [Suspect]
     Dosage: 50-150 MG
     Route: 048
     Dates: start: 20020819
  10. SEROQUEL [Suspect]
     Dosage: 50-150 MG
     Route: 048
     Dates: start: 20020819
  11. ZYPREXA [Concomitant]
     Indication: BIPOLAR DISORDER
     Dates: start: 19950101, end: 19960101
  12. ZYPREXA [Concomitant]
     Indication: POST-TRAUMATIC STRESS DISORDER
     Dates: start: 19950101, end: 19960101
  13. RISPERDAL [Concomitant]
     Indication: BIPOLAR DISORDER
     Dates: start: 20030101, end: 20050101
  14. RISPERDAL [Concomitant]
     Indication: POST-TRAUMATIC STRESS DISORDER
     Dates: start: 20030101, end: 20050101
  15. MAXZIDE [Concomitant]
     Dosage: 37.5/25 MG, EVERY MORNING
     Route: 048
     Dates: start: 20050705
  16. GLUCOTROL [Concomitant]
     Dates: start: 20050701
  17. GEODON [Concomitant]
     Dates: start: 20041007
  18. METFORMIN HCL [Concomitant]
     Dosage: 1000-2000 MG
     Route: 048
     Dates: start: 20041007
  19. TOPAMAX [Concomitant]
     Dosage: 100-200 MG
     Dates: start: 20041007, end: 20050411
  20. TYLENOL W/ CODEINE NO. 3 [Concomitant]
     Indication: NEUROPATHY PERIPHERAL
     Dosage: ONE THREE TIMES A DAY
     Dates: start: 20041007
  21. TYLENOL W/ CODEINE NO. 3 [Concomitant]
     Indication: PAIN
     Dosage: ONE THREE TIMES A DAY
     Dates: start: 20041007
  22. LOVASTATIN [Concomitant]
     Dosage: 20-40 MG
     Dates: start: 20041007, end: 20050830
  23. NIASPAN [Concomitant]
     Dosage: 500-1000 MG, DAILY
     Dates: start: 20041007, end: 20050830
  24. LISINOPRIL [Concomitant]
     Dates: start: 20010128
  25. ACTOS [Concomitant]
     Dates: start: 20041007
  26. SINGULAIR [Concomitant]
     Dates: start: 20050103
  27. ASPIRIN [Concomitant]
     Dates: start: 20041129
  28. CELEXA [Concomitant]
     Dates: start: 20020708
  29. TRILEPTAL [Concomitant]
     Dates: start: 20020916
  30. ABILIFY [Concomitant]
     Dates: start: 20030101

REACTIONS (5)
  - DIABETES MELLITUS INADEQUATE CONTROL [None]
  - DIABETIC NEUROPATHY [None]
  - METABOLIC SYNDROME [None]
  - NEUROPATHY PERIPHERAL [None]
  - TYPE 2 DIABETES MELLITUS [None]
